FAERS Safety Report 8012955-7 (Version None)
Quarter: 2011Q4

REPORT INFORMATION
  Report Type: 
  Country: None (occurrence: None)
  Receive Date: 20111229
  Receipt Date: 20111215
  Transmission Date: 20120403
  Serious: Yes (Hospitalization)
  Sender: FDA-Public Use
  Company Number: AT-CELGENEUS-009-50794-11121927

PATIENT
  Age: 76 Year
  Sex: Male
  Weight: 52 kg

DRUGS (1)
  1. VIDAZA [Suspect]
     Dosage: 100 MILLIGRAM
     Route: 065

REACTIONS (2)
  - ABNORMAL LOSS OF WEIGHT [None]
  - BONE PAIN [None]
